FAERS Safety Report 7475274-3 (Version None)
Quarter: 2011Q2

REPORT INFORMATION
  Report Type: 
  Country: None (occurrence: None)
  Receive Date: 20110509
  Receipt Date: 20110509
  Transmission Date: 20111010
  Serious: Yes (Life-Threatening, Hospitalization, Other)
  Sender: FDA-Public Use
  Company Number: None

PATIENT
  Sex: Female
  Weight: 94.8018 kg

DRUGS (4)
  1. ADENOSINE [Suspect]
     Indication: DRUG HYPERSENSITIVITY
     Dosage: 3 INJECTION
     Dates: start: 20110307
  2. ADENOSINE [Suspect]
     Indication: DRUG HYPERSENSITIVITY
     Dosage: 3 INJECTION
     Dates: start: 20110324
  3. LEXISCAN [Suspect]
     Dates: start: 20110320
  4. LEXISCAN [Suspect]
     Dates: start: 20110318

REACTIONS (5)
  - HEART RATE IRREGULAR [None]
  - DIZZINESS [None]
  - DYSPHAGIA [None]
  - CHEST PAIN [None]
  - HEADACHE [None]
